FAERS Safety Report 7416652-8 (Version None)
Quarter: 2011Q2

REPORT INFORMATION
  Report Type: 
  Country: None (occurrence: None)
  Receive Date: 20110415
  Receipt Date: 20110405
  Transmission Date: 20111010
  Serious: No
  Sender: FDA-Public Use
  Company Number: US-BIOGENIDEC-2011BI007156

PATIENT
  Age: 42 Year
  Sex: Female

DRUGS (3)
  1. VESICARE [Concomitant]
     Indication: BLADDER DISORDER
  2. TYSABRI [Suspect]
     Indication: MULTIPLE SCLEROSIS
     Route: 042
     Dates: start: 20110221
  3. DEPAKOTE [Concomitant]
     Indication: CONVULSION

REACTIONS (1)
  - OEDEMA PERIPHERAL [None]
